FAERS Safety Report 20527615 (Version 1)
Quarter: 2022Q1

REPORT INFORMATION
  Report Type: Spontaneous
  Country: US (occurrence: None)
  Receive Date: 20220228
  Receipt Date: 20220228
  Transmission Date: 20220423
  Serious: Yes (Hospitalization)
  Sender: FDA-Public Use
  Company Number: None

PATIENT
  Age: 90 Year
  Sex: Male
  Weight: 63.45 kg

DRUGS (12)
  1. SOTROVIMAB [Suspect]
     Active Substance: SOTROVIMAB
     Indication: COVID-19
     Dosage: OTHER FREQUENCY : ONCE;?
     Route: 041
  2. Lactulose 15 ml daily [Concomitant]
  3. Docustate Sodium 1 cap twice per day [Concomitant]
  4. Acyclovir 200 mg twice daily [Concomitant]
  5. finasteride 5 mg daily at bedtime [Concomitant]
  6. doxazosin 8mg daily at bedtime [Concomitant]
  7. famotidine 20 mg daily [Concomitant]
  8. dorzolamide-timolol 2-0.5% drop- one drop in eyes twice daily [Concomitant]
  9. aspirin 325mg daily [Concomitant]
  10. tramadol 50mg every 6 hours as needed [Concomitant]
  11. acetaminophen with codeine 1 tab as needed [Concomitant]
  12. timolol maleate 0.5% ophthalmic solution 1 drop eyes daily [Concomitant]

REACTIONS (2)
  - COVID-19 pneumonia [None]
  - Infusion related reaction [None]

NARRATIVE: CASE EVENT DATE: 20220225
